FAERS Safety Report 8358241 (Version 10)
Quarter: 2015Q3

REPORT INFORMATION
  Report Type: Report from Study
  Country: CA (occurrence: CA)
  Receive Date: 20120127
  Receipt Date: 20150918
  Transmission Date: 20151125
  Serious: Yes (Other)
  Sender: FDA-Public Use
  Company Number: CA-ROCHE-790221

PATIENT
  Age: 52 Year
  Sex: Male
  Weight: 78.2 kg

DRUGS (20)
  1. PLAQUENIL [Concomitant]
     Active Substance: HYDROXYCHLOROQUINE SULFATE
  2. METHYLPREDNISOLONE. [Concomitant]
     Active Substance: METHYLPREDNISOLONE
     Route: 042
     Dates: start: 20090227
  3. HYDROMORPHONE [Concomitant]
     Active Substance: HYDROMORPHONE
  4. NORVASC [Concomitant]
     Active Substance: AMLODIPINE BESYLATE
  5. METHYLPREDNISOLONE. [Concomitant]
     Active Substance: METHYLPREDNISOLONE
     Dosage: ONCE
     Route: 042
     Dates: start: 20110131, end: 20110131
  6. METHYLPREDNISOLONE. [Concomitant]
     Active Substance: METHYLPREDNISOLONE
     Route: 042
     Dates: start: 20091126
  7. DIPHENHYDRAMINE HYDROCHLORIDE. [Concomitant]
     Active Substance: DIPHENHYDRAMINE HYDROCHLORIDE
     Route: 048
  8. RITUXAN [Suspect]
     Active Substance: RITUXIMAB
     Indication: SJOGREN^S SYNDROME
     Dosage: FREQUENCY: DAY 1 AND DAY 15, LAST DOSE ADMINISTER ON 30/JUL/2013.
     Route: 042
  9. DIPHENHYDRAMINE HYDROCHLORIDE. [Concomitant]
     Active Substance: DIPHENHYDRAMINE HYDROCHLORIDE
     Route: 048
  10. ACETAMINOPHEN. [Concomitant]
     Active Substance: ACETAMINOPHEN
     Route: 048
  11. RITUXAN [Suspect]
     Active Substance: RITUXIMAB
     Route: 042
  12. DIPHENHYDRAMINE HYDROCHLORIDE. [Concomitant]
     Active Substance: DIPHENHYDRAMINE HYDROCHLORIDE
     Indication: PREMEDICATION
     Dosage: DOSE ONCE
     Route: 048
     Dates: start: 20110131, end: 20110131
  13. ACETAMINOPHEN. [Concomitant]
     Active Substance: ACETAMINOPHEN
     Indication: PREMEDICATION
     Dosage: ONCE
     Route: 048
     Dates: start: 20110131, end: 20110131
  14. FOLIC ACID. [Concomitant]
     Active Substance: FOLIC ACID
  15. PREDNISOLON [Concomitant]
     Active Substance: PREDNISOLONE
  16. DIPHENHYDRAMINE HYDROCHLORIDE. [Concomitant]
     Active Substance: DIPHENHYDRAMINE HYDROCHLORIDE
     Route: 048
     Dates: start: 20090227, end: 20140423
  17. ACETAMINOPHEN. [Concomitant]
     Active Substance: ACETAMINOPHEN
     Route: 048
  18. ACETAMINOPHEN. [Concomitant]
     Active Substance: ACETAMINOPHEN
     Route: 048
     Dates: start: 20090227, end: 20141020
  19. CELEBREX [Concomitant]
     Active Substance: CELECOXIB
  20. DIOVAN [Concomitant]
     Active Substance: VALSARTAN

REACTIONS (9)
  - Arthritis [Unknown]
  - Weight increased [Unknown]
  - Infusion related reaction [Unknown]
  - Skin cancer [Not Recovered/Not Resolved]
  - Neuralgia [Unknown]
  - Vein disorder [Unknown]
  - Blood pressure diastolic increased [Unknown]
  - Blood pressure increased [Unknown]
  - Off label use [Unknown]

NARRATIVE: CASE EVENT DATE: 201104
